FAERS Safety Report 11643023 (Version 1)
Quarter: 2015Q4

REPORT INFORMATION
  Report Type: Spontaneous
  Country: DE (occurrence: DE)
  Receive Date: 20151020
  Receipt Date: 20151020
  Transmission Date: 20160304
  Serious: Yes (Other)
  Sender: FDA-Public Use
  Company Number: DE-ACCORD-034642

PATIENT
  Age: 34 Year
  Sex: Male

DRUGS (2)
  1. ETOPOSIDE. [Suspect]
     Active Substance: ETOPOSIDE
     Indication: TESTICULAR GERM CELL CANCER
     Dosage: RECEIVED 3 CHEMOTHERAPY CYCLES
  2. CISPLATIN. [Suspect]
     Active Substance: CISPLATIN
     Indication: TESTICULAR GERM CELL CANCER
     Dosage: RECEIVED 3 CYCLES OF CHEMOTHERAPY

REACTIONS (2)
  - Embolism [Unknown]
  - Acute myocardial infarction [Unknown]
